FAERS Safety Report 4683410-7 (Version None)
Quarter: 2005Q2

REPORT INFORMATION
  Report Type: 
  Country: None (occurrence: None)
  Receive Date: 20050602
  Receipt Date: 20050330
  Transmission Date: 20051028
  Serious: No
  Sender: FDA-Public Use
  Company Number: 200510629BWH

PATIENT
  Age: 72 Year
  Sex: Male

DRUGS (4)
  1. LEVITRA [Suspect]
     Dosage: SEE IMAGE
     Route: 048
  2. LEVITRA [Suspect]
     Dosage: SEE IMAGE
     Route: 048
  3. LEVITRA [Suspect]
     Dosage: SEE IMAGE
     Route: 048
  4. ZOLOFT [Concomitant]

REACTIONS (2)
  - DRUG INEFFECTIVE [None]
  - NASAL CONGESTION [None]
